FAERS Safety Report 5912148-0 (Version None)
Quarter: 2008Q4

REPORT INFORMATION
  Report Type: 
  Country: None (occurrence: None)
  Receive Date: 20081003
  Receipt Date: 20081003
  Transmission Date: 20090506
  Serious: Yes (Hospitalization)
  Sender: FDA-Public Use
  Company Number: None

PATIENT
  Age: 63 Year
  Sex: Male
  Weight: 119.09 kg

DRUGS (2)
  1. CHLORPHENIRAMINE [Suspect]
     Dosage: 8 MG EVERY DAY PO
     Route: 048
     Dates: start: 20080908, end: 20080912
  2. BENZONATATE [Suspect]
     Dosage: 100 MG TID PO
     Route: 048
     Dates: start: 20080908, end: 20080912

REACTIONS (1)
  - SEDATION [None]
